FAERS Safety Report 4336120-X (Version None)
Quarter: 2004Q2

REPORT INFORMATION
  Report Type: 
  Country: None (occurrence: None)
  Receive Date: 20040407
  Receipt Date: 20040324
  Transmission Date: 20050107
  Serious: No
  Sender: FDA-Public Use
  Company Number: A01200401384

PATIENT

DRUGS (1)
  1. ELOXATIN [Suspect]

REACTIONS (1)
  - ACUTE PULMONARY OEDEMA [None]
